FAERS Safety Report 9238394 (Version 1)
Quarter: 2013Q1

REPORT INFORMATION
  Report Type: Spontaneous
  Country: US (occurrence: None)
  Receive Date: 20121106
  Receipt Date: 20121106
  Transmission Date: 20140127
  Serious: No
  Sender: FDA-Public Use
  Company Number: 1000037126

PATIENT
  Age: 74 Year
  Sex: Male

DRUGS (14)
  1. DALIRESP (ROFLUMILAST) (500 MICROGRAM, TABLETS) [Suspect]
     Dosage: 500 MCG (500 MCG, 1 IN 1 D), ORAL
     Route: 048
     Dates: start: 201207, end: 201207
  2. CEFPODOXIME (CEFPODOXIME) (CEFPODOXIME) [Concomitant]
  3. ZOLPIDEM (ZOLPIDEM) (ZOLPIDEM) [Concomitant]
  4. COUMADIN (WARFARIN) (WARFARIN) [Concomitant]
  5. ENALAPRIL (ENALAPRIL) (ENALAPRIL) [Concomitant]
  6. SINGULAIR [Concomitant]
  7. LOPERAMIDE (LOPERAMIDE) (LOPERAMIDE) [Concomitant]
  8. FUROSEMIDE [Concomitant]
  9. ADVAIR (SERETIDE) (SERETIDE) [Concomitant]
  10. SPIRIVA (TIOTROPIUM BROMIDE) (TIOTROPIUM BROMIDE) [Concomitant]
  11. LORATADINE (LORATADINE) (LORATADINE) [Concomitant]
  12. TRAMADOL (TRAMADOL) (TRAMADOL) [Concomitant]
  13. PANTOPRAZOLE (PANTOPRAZOLE) (PANTOPRAZOLE) [Concomitant]
  14. LEVAQUIN (LEVOFLOXACIN)  (LEVOFLOXACIN) [Concomitant]

REACTIONS (2)
  - Paraesthesia [None]
  - Respiratory rate increased [None]
